FAERS Safety Report 24569383 (Version 1)
Quarter: 2024Q4

REPORT INFORMATION
  Report Type: Report from Study
  Country: US (occurrence: US)
  Receive Date: 20241031
  Receipt Date: 20241031
  Transmission Date: 20250115
  Serious: Yes (Disabling)
  Sender: GILEAD
  Company Number: US-GILEAD-2024-0691494

PATIENT
  Sex: Male

DRUGS (1)
  1. AMBRISENTAN [Suspect]
     Active Substance: AMBRISENTAN
     Indication: Product used for unknown indication
     Dosage: 10 MG
     Route: 065
     Dates: start: 20100528

REACTIONS (2)
  - Tooth disorder [Unknown]
  - Off label use [Recovered/Resolved]
